FAERS Safety Report 19588776 (Version 2)
Quarter: 2021Q3

REPORT INFORMATION
  Report Type: Spontaneous
  Country: AR (occurrence: AR)
  Receive Date: 20210721
  Receipt Date: 20210903
  Transmission Date: 20211014
  Serious: Yes (Other)
  Sender: FDA-Public Use
  Company Number: AR-PFIZER INC-2021852274

PATIENT
  Age: 64 Year
  Sex: Female

DRUGS (1)
  1. XELJANZ [Suspect]
     Active Substance: TOFACITINIB CITRATE
     Indication: RHEUMATOID ARTHRITIS
     Dosage: 5 MG, 2X/DAY
     Dates: start: 20180921

REACTIONS (5)
  - Sciatica [Unknown]
  - Spinal disorder [Unknown]
  - Nervousness [Unknown]
  - Pain [Unknown]
  - Hypokinesia [Unknown]

NARRATIVE: CASE EVENT DATE: 202105
